FAERS Safety Report 10349104 (Version 1)
Quarter: 2014Q3

REPORT INFORMATION
  Report Type: Spontaneous
  Country: CA (occurrence: CA)
  Receive Date: 20140730
  Receipt Date: 20140730
  Transmission Date: 20150326
  Serious: Yes (Other)
  Sender: FDA-Public Use
  Company Number: PHHY2014CA089265

PATIENT
  Age: 72 Year
  Sex: Female
  Weight: 58.5 kg

DRUGS (2)
  1. PARIET [Concomitant]
     Active Substance: RABEPRAZOLE SODIUM
  2. ATORVASTATIN SANDOZ [Suspect]
     Active Substance: ATORVASTATIN
     Dosage: 20 MG, QD
     Route: 048

REACTIONS (5)
  - Oral pain [Unknown]
  - Ageusia [Unknown]
  - Cheilitis [Unknown]
  - Oral mucosal blistering [Unknown]
  - Adenoid cystic carcinoma [Unknown]
